FAERS Safety Report 8170493-5 (Version None)
Quarter: 2012Q1

REPORT INFORMATION
  Report Type: 
  Country: None (occurrence: None)
  Receive Date: 20120228
  Receipt Date: 20120216
  Transmission Date: 20120608
  Serious: Yes (Death, Life-Threatening)
  Sender: FDA-Public Use
  Company Number: RO-AMGEN-ROUSP2012009962

PATIENT
  Age: 67 Year
  Sex: Male
  Weight: 67 kg

DRUGS (2)
  1. ENBREL [Suspect]
     Indication: PSORIATIC ARTHROPATHY
     Dosage: 50 MG, UNK
     Route: 058
     Dates: end: 20111222
  2. ENBREL [Suspect]
     Indication: PSORIASIS

REACTIONS (3)
  - DUODENAL ULCER PERFORATION [None]
  - CARDIO-RESPIRATORY ARREST [None]
  - GASTRIC ULCER PERFORATION [None]
